FAERS Safety Report 5890387-5 (Version None)
Quarter: 2008Q3

REPORT INFORMATION
  Report Type: 
  Country: None (occurrence: None)
  Receive Date: 20080918
  Receipt Date: 20080911
  Transmission Date: 20090109
  Serious: Yes (Other)
  Sender: FDA-Public Use
  Company Number: CHPA2008US15324

PATIENT
  Sex: Male
  Weight: 99.8 kg

DRUGS (11)
  1. BENEFIBER W/WHEAT DEXTRIN (NCH) (WHEAT DEXTRIN) POWDER [Suspect]
     Indication: NUTRITIONAL SUPPORT
     Dosage: 2 TSP, TID, ORAL
     Route: 048
     Dates: end: 20080912
  2. ACCOLATE [Concomitant]
  3. ADVAIR DISKUS 100/50 [Concomitant]
  4. ASTELIN [Concomitant]
  5. NASONEX [Concomitant]
  6. LIPITOR [Concomitant]
  7. NORVASC [Concomitant]
  8. FLOMAX [Concomitant]
  9. PROSCAR [Concomitant]
  10. IPRATROPIUM BROMIDE [Concomitant]
  11. XOPENEX [Concomitant]

REACTIONS (5)
  - ASTHMA [None]
  - CONDITION AGGRAVATED [None]
  - COUGH [None]
  - PULMONARY CONGESTION [None]
  - WHEEZING [None]
